FAERS Safety Report 8784485 (Version 3)
Quarter: 2013Q1

REPORT INFORMATION
  Report Type: Spontaneous
  Country: US (occurrence: US)
  Receive Date: 20120913
  Receipt Date: 20130301
  Transmission Date: 20140127
  Serious: Yes (Other)
  Sender: FDA-Public Use
  Company Number: US-PFIZER INC-2012224033

PATIENT
  Age: 51 Year
  Sex: Female

DRUGS (15)
  1. LYRICA [Suspect]
     Indication: BACK PAIN
     Dosage: 150 MG, 2X/DAY
     Dates: start: 20120628
  2. XANAX [Suspect]
     Indication: ANXIETY
     Dosage: UNK
     Dates: start: 19790903
  3. XANAX [Suspect]
     Dosage: 2 MG, 4X/DAY, AS NEEDED
     Dates: start: 20121119
  4. SYMBICORT [Concomitant]
     Indication: DYSPNOEA
     Dosage: 160-4.5 MCG/ACT AEROSOL TWO TIMES DAILY
     Dates: start: 20100202
  5. CRESTOR [Concomitant]
     Indication: HYPERCHOLESTEROLAEMIA
     Dosage: 10 MG, 1X/DAY
     Dates: start: 20100202
  6. FLONASE [Concomitant]
     Indication: DYSPNOEA
     Dosage: 50MCG/ACT, 1 SUSPENSION DAILY
     Dates: start: 20100202
  7. ZOFRAN [Concomitant]
     Indication: NAUSEA
     Dosage: 4 MG, 4X/DAY, AS NEEDED
     Route: 048
     Dates: start: 20120104
  8. PROMETHAZINE HYDROCHLORIDE [Concomitant]
     Indication: NAUSEA
     Dosage: 25 MG, 1 TAB THREE TIMES DAILY, AS NEEDED
     Dates: start: 20120104
  9. LASIX [Concomitant]
     Dosage: 40 MG, 2X/DAY
     Dates: start: 20120730
  10. KLOR-CON [Concomitant]
     Dosage: 20 MEQ, 1X/DAY
     Dates: start: 20120730
  11. PLAVIX [Concomitant]
     Dosage: 75 MG, 1X/DAY
     Dates: start: 20120730
  12. COMBIVENT [Concomitant]
     Indication: DYSPNOEA
     Dosage: 18-103 MCG/ACT, 1 AEROSOL FOUR TIMES DAILY, AS NEEDED
     Dates: start: 20120710
  13. NITROSTAT [Concomitant]
     Dosage: 0.4MG, 1 TAB SUBLINGUAL AS DIRECTED
     Route: 060
     Dates: start: 20121107
  14. REGLAN [Concomitant]
     Indication: NAUSEA
     Dosage: 10 MG, 3X/DAY
     Dates: start: 20120801
  15. VENTOLIN [Concomitant]
     Dosage: 108 (90 BASE) MCG/ACT, 1 AEROSOL SOLN FOUR TIMES DAILY, AS NEEDED
     Dates: start: 20120712

REACTIONS (6)
  - Myocardial infarction [Unknown]
  - Cerebrovascular accident [Unknown]
  - Neoplasm malignant [Unknown]
  - Lung neoplasm malignant [Unknown]
  - Brain neoplasm malignant [Unknown]
  - Impaired gastric emptying [Unknown]
